FAERS Safety Report 8923368 (Version 1)
Quarter: 2012Q4

REPORT INFORMATION
  Report Type: 
  Country: US (occurrence: US)
  Receive Date: 20121123
  Receipt Date: 20121123
  Transmission Date: 20130627
  Serious: Yes (Other)
  Sender: FDA-Public Use
  Company Number: US-BAYER-2012-121925

PATIENT
  Age: 45 Year
  Sex: Male
  Weight: 117.46 kg

DRUGS (1)
  1. RID 1-2-3 SYSTEM [Suspect]
     Indication: PROPHYLAXIS

REACTIONS (4)
  - Dyspnoea [Recovered/Resolved]
  - Suffocation feeling [Recovered/Resolved]
  - Vomiting [Recovered/Resolved]
  - Throat irritation [Not Recovered/Not Resolved]
